FAERS Safety Report 20216626 (Version 1)
Quarter: 2021Q4

REPORT INFORMATION
  Report Type: Spontaneous
  Country: US (occurrence: None)
  Receive Date: 20211221
  Receipt Date: 20211221
  Transmission Date: 20220303
  Serious: No
  Sender: FDA-Public Use
  Company Number: None

PATIENT
  Age: 87 Year
  Sex: Male
  Weight: 80 kg

DRUGS (1)
  1. VANCOMYCIN HYDROCHLORIDE [Suspect]
     Active Substance: VANCOMYCIN HYDROCHLORIDE
     Indication: Sepsis
     Dosage: FREQUENCY : ONCE;?
     Route: 042
     Dates: start: 20211004, end: 20211005

REACTIONS (17)
  - Chest pain [None]
  - Chest discomfort [None]
  - Nausea [None]
  - Headache [None]
  - Loss of consciousness [None]
  - Pyrexia [None]
  - Chills [None]
  - Vomiting [None]
  - Dyspnoea [None]
  - Cough [None]
  - Rash [None]
  - Dizziness [None]
  - Hypoxia [None]
  - Hypotension [None]
  - Tachycardia [None]
  - Anaphylactic reaction [None]
  - Respiratory depression [None]

NARRATIVE: CASE EVENT DATE: 20211005
